FAERS Safety Report 8436248-9 (Version None)
Quarter: 2012Q2

REPORT INFORMATION
  Report Type: 
  Country: None (occurrence: None)
  Receive Date: 20120614
  Receipt Date: 20120605
  Transmission Date: 20120825
  Serious: Yes (Hospitalization)
  Sender: FDA-Public Use
  Company Number: CA-JNJFOC-20120603317

PATIENT
  Sex: Female
  Weight: 43 kg

DRUGS (7)
  1. ONDANSETRON [Concomitant]
     Indication: PREMEDICATION
     Route: 048
  2. HYDROCORTISONE [Concomitant]
     Indication: PREMEDICATION
     Route: 042
  3. ZANTAC [Concomitant]
     Route: 048
  4. PREVACID [Concomitant]
     Route: 048
  5. REMICADE [Suspect]
     Route: 042
     Dates: start: 20101001
  6. VITAMIN D [Concomitant]
     Route: 048
  7. REMICADE [Suspect]
     Indication: CROHN'S DISEASE
     Route: 042
     Dates: start: 20120522

REACTIONS (2)
  - HEADACHE [None]
  - VOMITING [None]
